FAERS Safety Report 23704751 (Version 16)
Quarter: 2024Q4

REPORT INFORMATION
  Report Type: Spontaneous
  Country: US (occurrence: US)
  Receive Date: 20240404
  Receipt Date: 20241008
  Transmission Date: 20250115
  Serious: Yes (Other)
  Sender: NOVARTIS
  Company Number: US-002147023-NVSC2024US071597

PATIENT

DRUGS (5)
  1. COSENTYX [Suspect]
     Active Substance: SECUKINUMAB
     Indication: Psoriasis
     Dosage: UNK
     Route: 065
  2. BENADRYL [Suspect]
     Active Substance: DIPHENHYDRAMINE HYDROCHLORIDE
     Indication: Urticaria
     Dosage: UNK
     Route: 065
  3. SIMPONI [Suspect]
     Active Substance: GOLIMUMAB
     Indication: Product used for unknown indication
     Dosage: UNK
     Route: 065
  4. ADVIL [Concomitant]
     Active Substance: IBUPROFEN
     Indication: Product used for unknown indication
     Dosage: UNK
     Route: 065
  5. OTEZLA [Concomitant]
     Active Substance: APREMILAST
     Indication: Product used for unknown indication
     Dosage: UNK
     Route: 065

REACTIONS (14)
  - Chronic cutaneous lupus erythematosus [Unknown]
  - Fatigue [Unknown]
  - Enthesopathy [Unknown]
  - Arthralgia [Unknown]
  - Product physical issue [Unknown]
  - Skin disorder [Unknown]
  - Urticaria [Recovered/Resolved]
  - Oscillopsia [Unknown]
  - Hypersensitivity [Unknown]
  - Arthropathy [Unknown]
  - Contusion [Unknown]
  - Pain [Unknown]
  - Musculoskeletal pain [Unknown]
  - Drug ineffective [Unknown]
